FAERS Safety Report 8612202-9 (Version None)
Quarter: 2012Q3

REPORT INFORMATION
  Report Type: 
  Country: None (occurrence: None)
  Receive Date: 20120822
  Receipt Date: 20120817
  Transmission Date: 20120928
  Serious: Yes (Other)
  Sender: FDA-Public Use
  Company Number: FR-PFIZER INC-2012201602

PATIENT
  Age: 67 Year
  Sex: Female

DRUGS (16)
  1. ZANTAC [Suspect]
     Indication: PRURITUS
  2. EBASTINE [Suspect]
     Indication: FAECALOMA
     Dosage: 10 MG, UNK
  3. EBASTINE [Suspect]
     Indication: PRURITUS
  4. NEULASTA [Suspect]
     Indication: PRURITUS
  5. ZOFRAN [Suspect]
     Indication: FAECALOMA
     Dosage: 8 MG, UNK
     Dates: start: 20120626
  6. ACEBUTOLOL [Concomitant]
     Dosage: 200 MG, 2X/DAY
  7. HALAVEN [Suspect]
     Indication: FAECALOMA
     Dosage: UNK
     Route: 042
     Dates: start: 20120619
  8. HALAVEN [Suspect]
     Indication: PRURITUS
     Dosage: 1.58 MG, UNK
     Route: 042
     Dates: start: 20120626
  9. ZANTAC [Suspect]
     Indication: FAECALOMA
     Dosage: 50 MG, UNK
     Dates: start: 20120626
  10. ZOFRAN [Suspect]
     Indication: PRURITUS
  11. SOLU-MEDROL [Suspect]
     Indication: FAECALOMA
     Dosage: 20 MG, UNK
     Dates: start: 20120626
  12. LORATADINE [Suspect]
     Indication: PRURITUS
  13. NEULASTA [Suspect]
     Indication: FAECALOMA
     Dosage: UNK
  14. SOLU-MEDROL [Suspect]
     Indication: PRURITUS
  15. LORATADINE [Suspect]
     Indication: FAECALOMA
  16. NEXIUM [Concomitant]
     Dosage: 20 MG, UNK

REACTIONS (3)
  - NAUSEA [None]
  - HERPES ZOSTER [None]
  - FATIGUE [None]
